FAERS Safety Report 7005482-7 (Version None)
Quarter: 2010Q3

REPORT INFORMATION
  Report Type: 
  Country: None (occurrence: None)
  Receive Date: 20100921
  Receipt Date: 20100917
  Transmission Date: 20110219
  Serious: Yes (Death)
  Sender: FDA-Public Use
  Company Number: SK-ROCHE-727814

PATIENT

DRUGS (1)
  1. BEVACIZUMAB [Suspect]
     Route: 042
     Dates: start: 20100803, end: 20100817

REACTIONS (1)
  - CARDIAC FAILURE [None]
